FAERS Safety Report 18384890 (Version 1)
Quarter: 2020Q4

REPORT INFORMATION
  Report Type: Spontaneous
  Country: US (occurrence: US)
  Receive Date: 20201015
  Receipt Date: 20201015
  Transmission Date: 20210114
  Serious: No
  Sender: FDA-Public Use
  Company Number: US-GLENMARK PHARMACEUTICALS-2020GMK049726

PATIENT
  Sex: Female

DRUGS (1)
  1. BETAMETHASONE DIPROPIONATE. [Suspect]
     Active Substance: BETAMETHASONE DIPROPIONATE
     Indication: PRODUCT USED FOR UNKNOWN INDICATION
     Dosage: UNK
     Route: 065
     Dates: start: 2020

REACTIONS (3)
  - Dizziness [Not Recovered/Not Resolved]
  - Skin swelling [Not Recovered/Not Resolved]
  - Vertigo [Not Recovered/Not Resolved]

NARRATIVE: CASE EVENT DATE: 2020
